FAERS Safety Report 17599805 (Version 1)
Quarter: 2020Q1

REPORT INFORMATION
  Report Type: Report from Study
  Country: GB (occurrence: GB)
  Receive Date: 20200330
  Receipt Date: 20200330
  Transmission Date: 20200409
  Serious: Yes (Other)
  Sender: FDA-Public Use
  Company Number: NVSC2020GB087480

PATIENT
  Sex: Male

DRUGS (1)
  1. HYRIMOZ [Suspect]
     Active Substance: ADALIMUMAB-ADAZ
     Indication: ANKYLOSING SPONDYLITIS
     Dosage: 1 DF, (40 MG/0.8 ML)), EVERY OTHER WEEK
     Route: 058

REACTIONS (3)
  - Oropharyngeal pain [Unknown]
  - Corona virus infection [Unknown]
  - Cough [Unknown]
